FAERS Safety Report 18795253 (Version 1)
Quarter: 2021Q1

REPORT INFORMATION
  Report Type: Spontaneous
  Country: NZ (occurrence: NZ)
  Receive Date: 20210127
  Receipt Date: 20210127
  Transmission Date: 20210419
  Serious: Yes (Death, Hospitalization)
  Sender: FDA-Public Use
  Company Number: NZ-009507513-CNL-118691-NL

PATIENT
  Age: 55 Year
  Sex: Male

DRUGS (2)
  1. DEXAMETHASONE. [Suspect]
     Active Substance: DEXAMETHASONE
     Indication: HAEMANGIOMA
     Dosage: DOSE TEXT: GIVEN FOR 8 WEEKS PRIOR TO ADMISSION
  2. DEXAMETHASONE. [Suspect]
     Active Substance: DEXAMETHASONE
     Indication: ILL-DEFINED DISORDER
     Dosage: CONTINUING: NO, DAILY DOSE: 8 MG
     Route: 048
     Dates: start: 199712, end: 199712

REACTIONS (1)
  - Infection [Fatal]
